FAERS Safety Report 23841650 (Version 2)
Quarter: 2024Q3

REPORT INFORMATION
  Report Type: Spontaneous
  Country: US (occurrence: US)
  Receive Date: 20240510
  Receipt Date: 20240807
  Transmission Date: 20241017
  Serious: Yes (Other)
  Sender: BRISTOL MYERS SQUIBB
  Company Number: US-BRISTOL-MYERS SQUIBB COMPANY-2024-070194

PATIENT
  Age: 63 Year
  Sex: Male
  Weight: 93.9 kg

DRUGS (2)
  1. EMPLICITI [Suspect]
     Active Substance: ELOTUZUMAB
     Indication: Plasma cell myeloma
     Dosage: DOSE : 930-940 MG;     FREQ : Q 2 WEEKS
     Route: 042
  2. EMPLICITI [Suspect]
     Active Substance: ELOTUZUMAB
     Indication: Amyloidosis

REACTIONS (3)
  - Plasma cell myeloma [Unknown]
  - Amyloidosis [Unknown]
  - Off label use [Unknown]

NARRATIVE: CASE EVENT DATE: 20240101
